FAERS Safety Report 8171724-8 (Version None)
Quarter: 2012Q1

REPORT INFORMATION
  Report Type: 
  Country: None (occurrence: None)
  Receive Date: 20120228
  Receipt Date: 20120106
  Transmission Date: 20120608
  Serious: Yes (Death, Hospitalization)
  Sender: FDA-Public Use
  Company Number: PHEH2011US01511

PATIENT
  Age: 54 Year
  Sex: Female

DRUGS (17)
  1. CYTOMEL [Concomitant]
     Dosage: 25 UG, TID
  2. MIRALAX [Suspect]
  3. OXYCODONE HCL [Concomitant]
     Dosage: 15 MG, Q4H
  4. COUGH SYRUP [Concomitant]
  5. STOOL SOFTENER [Concomitant]
  6. MEGESTROL ACETATE [Concomitant]
     Dosage: 40 MG, BID
  7. DETROL [Concomitant]
  8. MACRODANTIN [Concomitant]
     Dosage: 50 MG, QD
  9. VITAMIN D [Concomitant]
     Dosage: 50000 U, QW
  10. NEXIUM [Concomitant]
  11. ASPIRIN [Concomitant]
  12. DESYREL [Concomitant]
     Dosage: 100 MG, TWO OR FOUR TIMES A DAY
  13. ZYRTEC [Concomitant]
  14. SOMA [Concomitant]
  15. GILENYA [Suspect]
     Indication: MULTIPLE SCLEROSIS
     Dosage: 0.5 MG, QD
     Route: 048
  16. DIAZEPAM [Concomitant]
     Dosage: 5 MG, UNK
  17. BENADRYL [Concomitant]

REACTIONS (6)
  - URINARY INCONTINENCE [None]
  - PROGRESSIVE MULTIPLE SCLEROSIS [None]
  - DYSPNOEA [None]
  - DEATH [None]
  - PYREXIA [None]
  - UROSEPSIS [None]
